FAERS Safety Report 8169636-9 (Version None)
Quarter: 2012Q1

REPORT INFORMATION
  Report Type: 
  Country: None (occurrence: None)
  Receive Date: 20120104
  Receipt Date: 20111130
  Transmission Date: 20120608
  Serious: No
  Sender: FDA-Public Use
  Company Number: 2011HGS-002878

PATIENT
  Age: 37 Year
  Sex: Female
  Weight: 66.6788 kg

DRUGS (10)
  1. CELEXA [Concomitant]
  2. BENLYSTA [Suspect]
     Indication: SYSTEMIC LUPUS ERYTHEMATOSUS
     Dosage: 10 MG/KG, 1 IN 28 D, INTRAVENOUS DRIP
     Dates: start: 20111115
  3. POTASSIUM CHLORIDE [Concomitant]
  4. RELPAX [Concomitant]
  5. PLAQUENIL [Concomitant]
  6. ZOFRAN [Concomitant]
  7. IMURAN [Concomitant]
  8. MEDROL [Concomitant]
  9. DIAMOX [Concomitant]
  10. FLEXERIL (CYCLOBENZPRINE HYDROCHLORIDE) [Concomitant]

REACTIONS (4)
  - URTICARIA [None]
  - ANXIETY [None]
  - DIARRHOEA [None]
  - HEADACHE [None]
